FAERS Safety Report 16227788 (Version 1)
Quarter: 2019Q2

REPORT INFORMATION
  Report Type: Spontaneous
  Country: US (occurrence: US)
  Receive Date: 20190422
  Receipt Date: 20190422
  Transmission Date: 20190711
  Serious: Yes (Disabling)
  Sender: FDA-Public Use
  Company Number: None

PATIENT
  Age: 32 Year
  Sex: Female
  Weight: 54 kg

DRUGS (5)
  1. GABAPENTIN. [Concomitant]
     Active Substance: GABAPENTIN
  2. VITAMIN B COMPLEX [Concomitant]
     Active Substance: CYANOCOBALAMIN\DEXPANTHENOL\NIACINAMIDE\PYRIDOXINE HYDROCHLORIDE\RIBOFLAVIN 5^-PHOSPHATE SODIUM\THIAMINE HYDROCHLORIDE\VITAMIN B COMPLEX
  3. FOLIC ACID. [Concomitant]
     Active Substance: FOLIC ACID
  4. TURMERIC [Concomitant]
     Active Substance: HERBALS\TURMERIC
  5. ZIPRASIDONE. [Suspect]
     Active Substance: ZIPRASIDONE
     Indication: BIPOLAR DISORDER
     Route: 048
     Dates: start: 20160512, end: 20181015

REACTIONS (6)
  - Throat tightness [None]
  - Musculoskeletal stiffness [None]
  - Muscle spasms [None]
  - Gait disturbance [None]
  - Nervous system disorder [None]
  - Poor peripheral circulation [None]

NARRATIVE: CASE EVENT DATE: 20180215
